FAERS Safety Report 19805783 (Version 1)
Quarter: 2021Q3

REPORT INFORMATION
  Report Type: Spontaneous
  Country: GB (occurrence: GB)
  Receive Date: 20210909
  Receipt Date: 20210909
  Transmission Date: 20211014
  Serious: Yes (Other)
  Sender: FDA-Public Use
  Company Number: GB-TEVA-2021-GB-1949875

PATIENT
  Age: 30 Year
  Sex: Male

DRUGS (13)
  1. MEPTAZINOL [Suspect]
     Active Substance: MEPTAZINOL HYDROCHLORIDE
     Indication: PAIN
     Route: 065
  2. CODEINE [Suspect]
     Active Substance: CODEINE
     Indication: PAIN
     Route: 065
     Dates: start: 2001
  3. COCODAMOL [Suspect]
     Active Substance: ACETAMINOPHEN\CODEINE PHOSPHATE
     Indication: PAIN
     Route: 065
  4. NEFOPAM [Suspect]
     Active Substance: NEFOPAM
     Indication: PAIN
     Route: 065
  5. GABAPENTIN. [Suspect]
     Active Substance: GABAPENTIN
     Indication: PAIN
     Route: 065
     Dates: start: 2005
  6. CO?DYDRAMOL [Suspect]
     Active Substance: ACETAMINOPHEN\DIHYDROCODEINE
     Indication: PAIN
     Route: 065
  7. VOLTAROL [Suspect]
     Active Substance: DICLOFENAC SODIUM
     Indication: PAIN
     Dosage: 150 MILLIGRAM DAILY;
     Route: 065
  8. DICLOFENAC [Suspect]
     Active Substance: DICLOFENAC
     Indication: PAIN
     Route: 065
     Dates: start: 2001
  9. AMITRIPTYLINE [Concomitant]
     Active Substance: AMITRIPTYLINE
     Indication: PAIN
     Route: 065
  10. TRAMADOL. [Suspect]
     Active Substance: TRAMADOL
     Indication: PAIN
     Route: 065
  11. PARACETAMOL [Suspect]
     Active Substance: ACETAMINOPHEN
     Indication: PAIN
     Route: 065
     Dates: start: 2005
  12. CODEINE KAPAKE [Suspect]
     Active Substance: ACETAMINOPHEN\CODEINE PHOSPHATE
     Indication: PAIN
     Route: 065
  13. CELECOXIB. [Concomitant]
     Active Substance: CELECOXIB
     Indication: PAIN
     Route: 065
     Dates: start: 2003

REACTIONS (6)
  - Nausea [Unknown]
  - Hyperhidrosis [Unknown]
  - Drug ineffective [Unknown]
  - Drug withdrawal syndrome [Unknown]
  - Pain [Unknown]
  - Feeling hot [Unknown]
